FAERS Safety Report 18647515 (Version 1)
Quarter: 2020Q4

REPORT INFORMATION
  Report Type: Spontaneous
  Country: US (occurrence: US)
  Receive Date: 20201222
  Receipt Date: 20201222
  Transmission Date: 20210114
  Serious: No
  Sender: FDA-Public Use
  Company Number: US-RECKITT BENCKISER HEALTHCARE INT LIMITED-RB-80220-2020

PATIENT
  Age: 4 Year
  Sex: Male
  Weight: 17.23 kg

DRUGS (2)
  1. DELSYM [Suspect]
     Active Substance: DEXTROMETHORPHAN
     Indication: PRODUCT USED FOR UNKNOWN INDICATION
     Dosage: 2.5 MILLILITER, UNKNOWN
     Route: 065
     Dates: start: 20191129
  2. DELSYM [Suspect]
     Active Substance: DEXTROMETHORPHAN
     Dosage: 10 MILLILITER, UNKNOWN
     Route: 065
     Dates: start: 2019

REACTIONS (3)
  - Somnolence [Recovered/Resolved]
  - Hyperhidrosis [Recovered/Resolved]
  - Accidental overdose [Recovered/Resolved]

NARRATIVE: CASE EVENT DATE: 2019
